FAERS Safety Report 23111964 (Version 1)
Quarter: 2023Q4

REPORT INFORMATION
  Report Type: Spontaneous
  Country: CN (occurrence: CN)
  Receive Date: 20231026
  Receipt Date: 20231026
  Transmission Date: 20240109
  Serious: Yes (Other)
  Sender: FDA-Public Use
  Company Number: CN-PFIZER INC-PV202300176727

PATIENT
  Age: 30 Year
  Sex: Female
  Weight: 80 kg

DRUGS (2)
  1. CYTARABINE [Suspect]
     Active Substance: CYTARABINE
     Indication: Acute lymphocytic leukaemia
     Dosage: 6.000 G, 1X/DAY
     Route: 041
     Dates: start: 20230925, end: 20230925
  2. CYTARABINE [Suspect]
     Active Substance: CYTARABINE
     Dosage: 5.500 G, 1X/DAY
     Route: 041
     Dates: start: 20230926, end: 20230926

REACTIONS (2)
  - Rash [Unknown]
  - Pain [Unknown]

NARRATIVE: CASE EVENT DATE: 20230927
